FAERS Safety Report 23424999 (Version 3)
Quarter: 2025Q3

REPORT INFORMATION
  Report Type: Report from Study
  Country: US (occurrence: US)
  Receive Date: 20240121
  Receipt Date: 20250716
  Transmission Date: 20251020
  Serious: Yes (Other)
  Sender: NOVARTIS
  Company Number: US-002147023-NVSC2023US261015

PATIENT
  Sex: Female

DRUGS (2)
  1. KISQALI FEMARA CO-PACK [Suspect]
     Active Substance: LETROZOLE\RIBOCICLIB SUCCINATE
     Indication: Breast cancer
     Dosage: 600 MG, QD
     Route: 048
     Dates: start: 20231028
  2. KISQALI FEMARA CO-PACK [Suspect]
     Active Substance: LETROZOLE\RIBOCICLIB SUCCINATE
     Indication: Breast cancer
     Route: 065
     Dates: start: 20231028

REACTIONS (9)
  - COVID-19 [Recovering/Resolving]
  - Feeling cold [Recovering/Resolving]
  - Pyrexia [Recovering/Resolving]
  - Taste disorder [Unknown]
  - Decreased appetite [Unknown]
  - White blood cell count decreased [Unknown]
  - Wound [Recovering/Resolving]
  - Blood magnesium decreased [Unknown]
  - Nausea [Unknown]
